FAERS Safety Report 6610892-3 (Version None)
Quarter: 2010Q1

REPORT INFORMATION
  Report Type: 
  Country: None (occurrence: None)
  Receive Date: 20100302
  Receipt Date: 20091105
  Transmission Date: 20100710
  Serious: No
  Sender: FDA-Public Use
  Company Number: US-ABBOTT-09P-163-0602042-00

PATIENT
  Sex: Female
  Weight: 19.976 kg

DRUGS (9)
  1. DEPAKENE [Suspect]
     Indication: CONVULSION
     Dates: start: 20090601, end: 20090701
  2. DEPAKENE [Suspect]
     Dates: start: 20090701, end: 20090801
  3. DEPAKENE [Suspect]
     Dates: start: 20090801, end: 20090901
  4. DEPAKENE [Suspect]
     Dates: start: 20090801, end: 20090801
  5. DEPAKENE [Suspect]
     Dates: start: 20090901, end: 20091005
  6. DEPAKENE [Suspect]
     Dates: end: 20091005
  7. ZONEGRAN [Suspect]
     Indication: CONVULSION
     Route: 048
     Dates: start: 20090801, end: 20090901
  8. CLONAZEPAM [Concomitant]
     Indication: CONVULSION
     Route: 048
     Dates: start: 20090801
  9. DIASTAT [Concomitant]
     Indication: DRUG USE FOR UNKNOWN INDICATION
     Route: 054

REACTIONS (5)
  - AGGRESSION [None]
  - BALANCE DISORDER [None]
  - CONSTIPATION [None]
  - CONVULSION [None]
  - PSYCHOMOTOR HYPERACTIVITY [None]
